FAERS Safety Report 9982634 (Version 1)
Quarter: 2014Q1

REPORT INFORMATION
  Report Type: Spontaneous
  Country: US (occurrence: US)
  Receive Date: 20140307
  Receipt Date: 20140307
  Transmission Date: 20141002
  Serious: No
  Sender: FDA-Public Use
  Company Number: US-ABBVIE-13P-163-1175847-00

PATIENT
  Age: 47 Year
  Sex: Female
  Weight: 49.03 kg

DRUGS (4)
  1. HUMIRA [Suspect]
     Indication: CROHN^S DISEASE
     Dosage: ONE DOSE
     Dates: start: 20131201, end: 20131201
  2. HUMIRA [Suspect]
     Indication: COLITIS ULCERATIVE
  3. UNNAMED MEDICATION [Concomitant]
     Indication: CONTRACEPTION
  4. FLUOXETINE [Concomitant]
     Indication: ANXIETY

REACTIONS (6)
  - Incorrect dose administered [Not Recovered/Not Resolved]
  - Device malfunction [Not Recovered/Not Resolved]
  - Wrong technique in drug usage process [Not Recovered/Not Resolved]
  - Injection site pain [Recovered/Resolved]
  - Injection site pain [Not Recovered/Not Resolved]
  - Injection site haemorrhage [Recovered/Resolved]
